FAERS Safety Report 4761729-9 (Version None)
Quarter: 2005Q3

REPORT INFORMATION
  Report Type: 
  Country: None (occurrence: None)
  Receive Date: 20050906
  Receipt Date: 20050420
  Transmission Date: 20060218
  Serious: Yes (Hospitalization, Other)
  Sender: FDA-Public Use
  Company Number: PHEH2005US04555

PATIENT
  Age: 57 Year
  Sex: Female

DRUGS (9)
  1. HYDRALAZINE [Suspect]
     Dosage: 10 MG IVP
     Route: 042
  2. CLONIDINE [Concomitant]
  3. EQUAGESIC [Concomitant]
  4. IRON [Concomitant]
  5. LASIX [Concomitant]
  6. KLONOPIN [Concomitant]
  7. PRILOSEC [Concomitant]
  8. ATARAX [Concomitant]
  9. ALLEGRA [Concomitant]

REACTIONS (20)
  - AORTIC VALVE SCLEROSIS [None]
  - ASTHENIA [None]
  - BLOOD PRESSURE DECREASED [None]
  - CARDIOMEGALY [None]
  - CARDIOMYOPATHY [None]
  - CEREBRAL ATHEROSCLEROSIS [None]
  - CEREBRAL ISCHAEMIA [None]
  - COMPUTERISED TOMOGRAM ABNORMAL [None]
  - CORONARY ARTERY DISEASE [None]
  - DIZZINESS [None]
  - ELECTROCARDIOGRAM ST SEGMENT DEPRESSION [None]
  - HEADACHE [None]
  - HEART RATE DECREASED [None]
  - HYPERTENSION [None]
  - HYPOTENSION [None]
  - ISCHAEMIC CEREBRAL INFARCTION [None]
  - NAUSEA [None]
  - REFUSAL OF TREATMENT BY PATIENT [None]
  - VENTRICULAR HYPERTROPHY [None]
  - VERTIGO [None]
